FAERS Safety Report 24230674 (Version 1)
Quarter: 2024Q3

REPORT INFORMATION
  Report Type: Spontaneous
  Country: CA (occurrence: CA)
  Receive Date: 20240821
  Receipt Date: 20240821
  Transmission Date: 20241016
  Serious: Yes (Hospitalization, Other)
  Sender: NOVO NORDISK
  Company Number: None

PATIENT
  Age: 4 Year
  Sex: Male

DRUGS (13)
  1. NORDITROPIN [Suspect]
     Active Substance: SOMATROPIN
     Dosage: 0.35 MG, QD (0.35 MILLIGRAM EVERY 1 DAYS)
     Route: 058
  2. NORDITROPIN [Suspect]
     Active Substance: SOMATROPIN
     Dosage: 0.18 MG/KG
  3. NORDITROPIN [Suspect]
     Active Substance: SOMATROPIN
     Dosage: 0.3 MG, QD (0.3 MILLIGRAM EVERY 1 DAYS)
  4. NORDITROPIN [Suspect]
     Active Substance: SOMATROPIN
     Dosage: 0.4 MG, QD (0.4 MILLIGRAM 1 EVERY 1 DAYS)
     Route: 058
  5. NORDITROPIN [Suspect]
     Active Substance: SOMATROPIN
     Dosage: 500.0 ?G 1 EVERY 1 DAYS
     Route: 058
  6. NORDITROPIN [Suspect]
     Active Substance: SOMATROPIN
     Dosage: 400.0 ?G 1 EVERY 1 DAYS
     Route: 058
  7. NORDITROPIN [Suspect]
     Active Substance: SOMATROPIN
     Indication: Growth hormone deficiency
     Dosage: 450.0 ?G 1 EVERY 1 DAYS
     Route: 058
  8. DDAVP [Concomitant]
     Active Substance: DESMOPRESSIN ACETATE
     Dosage: UNK
  9. MELATONIN [Concomitant]
     Active Substance: MELATONIN
     Dosage: UNK
  10. PREDNISONE [Concomitant]
     Active Substance: PREDNISONE
     Dosage: UNK
  11. SYNTHROID [Concomitant]
     Active Substance: LEVOTHYROXINE SODIUM
     Dosage: UNK
  12. TOPAMAX [Concomitant]
     Active Substance: TOPIRAMATE
     Dosage: UNK
  13. KEPPRA [Concomitant]
     Active Substance: LEVETIRACETAM
     Dosage: UNK

REACTIONS (3)
  - Gastroenteritis viral [Unknown]
  - Hypoglycaemic seizure [Unknown]
  - Hypopituitarism [Unknown]
